FAERS Safety Report 5978681-0 (Version None)
Quarter: 2008Q4

REPORT INFORMATION
  Report Type: 
  Country: None (occurrence: None)
  Receive Date: 20081126
  Receipt Date: 20081118
  Transmission Date: 20090506
  Serious: Yes (Death)
  Sender: FDA-Public Use
  Company Number: 2008AL011858

PATIENT
  Age: 57 Year
  Sex: Male
  Weight: 45.3597 kg

DRUGS (1)
  1. DIGOXIN [Suspect]
     Indication: CARDIAC FAILURE CONGESTIVE
     Dosage: PO
     Route: 048

REACTIONS (5)
  - HYPERHIDROSIS [None]
  - HYPERTENSION [None]
  - HYPOPHAGIA [None]
  - INSOMNIA [None]
  - PALPITATIONS [None]
